FAERS Safety Report 4382115-X (Version None)
Quarter: 2004Q2

REPORT INFORMATION
  Report Type: 
  Country: None (occurrence: None)
  Receive Date: 20040603
  Receipt Date: 20030404
  Transmission Date: 20050107
  Serious: Yes (Hospitalization)
  Sender: FDA-Public Use
  Company Number: 200313183US

PATIENT
  Age: 57 Year
  Sex: Male
  Weight: 110.5 kg

DRUGS (11)
  1. HEPARIN-FRACTION, SODIUM SALT (LOVENOX) SOLUTION FOR INJECTION [Suspect]
     Indication: DEEP VEIN THROMBOSIS
     Dosage: 110 MG Q12H SC
     Route: 058
     Dates: start: 20030426, end: 20030429
  2. IBUPROFEN [Concomitant]
  3. WARFARIN SODIUM [Concomitant]
  4. MORPHINE SULFATE [Concomitant]
  5. DEXAMETHASONE [Concomitant]
  6. CLOTRIMAZOLE [Concomitant]
  7. ACYCLOVIR [Concomitant]
  8. ONDANSETRON [Concomitant]
  9. SULFAMETHOXAZOLE [Concomitant]
  10. PROCHLORPERAZINE [Concomitant]
  11. TRIAMCINOLONE [Concomitant]

REACTIONS (4)
  - FAECAL OCCULT BLOOD POSITIVE [None]
  - HAEMATOCRIT DECREASED [None]
  - HAEMOGLOBIN DECREASED [None]
  - HAEMORRHAGE [None]
